FAERS Safety Report 5262937-3 (Version None)
Quarter: 2007Q1

REPORT INFORMATION
  Report Type: 
  Country: None (occurrence: None)
  Receive Date: 20070312
  Receipt Date: 20070301
  Transmission Date: 20070707
  Serious: Yes (Hospitalization)
  Sender: FDA-Public Use
  Company Number: JP-JNJFOC-20060603164

PATIENT
  Sex: Female

DRUGS (3)
  1. ITRACONAZOLE [Suspect]
     Indication: NAIL TINEA
     Route: 048
     Dates: start: 20060529, end: 20060604
  2. ANALGESIC ANTIPYRETIC [Suspect]
     Indication: MALAISE
     Route: 048
  3. ANALGESIC ANTIPYRETIC [Suspect]
     Indication: HEADACHE
     Route: 048

REACTIONS (2)
  - DRUG ERUPTION [None]
  - RESPIRATORY DISTRESS [None]
